FAERS Safety Report 13053416 (Version 1)
Quarter: 2016Q4

REPORT INFORMATION
  Report Type: Report from Study
  Country: None (occurrence: US)
  Receive Date: 20161222
  Receipt Date: 20161222
  Transmission Date: 20170207
  Serious: Yes (Hospitalization)
  Sender: FDA-Public Use
  Company Number: US-ABBVIE-16K-163-1741337-00

PATIENT
  Age: 24 Year
  Sex: Male

DRUGS (1)
  1. HUMIRA [Suspect]
     Active Substance: ADALIMUMAB
     Indication: CROHN^S DISEASE
     Route: 058
     Dates: start: 20160422, end: 2016

REACTIONS (5)
  - Anaesthetic complication [Recovered/Resolved]
  - Crohn^s disease [Recovering/Resolving]
  - Drug ineffective [Not Recovered/Not Resolved]
  - Benign neoplasm [Not Recovered/Not Resolved]
  - Intestinal obstruction [Recovered/Resolved]

NARRATIVE: CASE EVENT DATE: 2016
